FAERS Safety Report 7531821-4 (Version None)
Quarter: 2011Q2

REPORT INFORMATION
  Report Type: 
  Country: None (occurrence: None)
  Receive Date: 20110601
  Receipt Date: 20110516
  Transmission Date: 20111010
  Serious: No
  Sender: FDA-Public Use
  Company Number: THQ2011A02408

PATIENT
  Age: 54 Year
  Sex: Female

DRUGS (8)
  1. PRAVASTATIN [Suspect]
     Dosage: PER ORAL
     Route: 048
  2. MEDIATOR (BENFLUOREX HYDROCHLORIDE) [Suspect]
     Dosage: 300 TO 450 MG (1 D) PER ORAL
     Route: 048
     Dates: start: 20040301, end: 20060901
  3. KREDEX (CARVEDILOL) [Concomitant]
  4. SINGULAIR [Suspect]
     Dosage: PER ORAL
     Route: 048
  5. SERETIDE DISKUS (FLUTICASONE PROPIONATE, SALMETEROL XINAFOATE) [Suspect]
  6. LEVOTHYROXINE SODIUM [Suspect]
     Dosage: PER ORAL
     Route: 048
  7. LANSOPRAZOLE [Suspect]
     Dosage: PER ORAL
     Route: 048
  8. ALTIZIDE/SPIRONOLACTONE (SPIRONOLACTONE, ALTIZIDE) [Concomitant]

REACTIONS (6)
  - CARDIOMEGALY [None]
  - MITRAL VALVE INCOMPETENCE [None]
  - WEIGHT INCREASED [None]
  - AORTIC VALVE INCOMPETENCE [None]
  - DYSPNOEA [None]
  - MALAISE [None]
